FAERS Safety Report 9630328 (Version 1)
Quarter: 2013Q4

REPORT INFORMATION
  Report Type: Spontaneous
  Country: DE (occurrence: DE)
  Receive Date: 20131018
  Receipt Date: 20131018
  Transmission Date: 20140711
  Serious: Yes (Other)
  Sender: FDA-Public Use
  Company Number: DE-009507513-1310DEU005306

PATIENT
  Age: 30 Year
  Sex: Female
  Weight: 68 kg

DRUGS (5)
  1. MIRTAZAPINE [Suspect]
     Indication: DEPRESSION
     Dosage: 15 MILLIGRAM(S), 1 IN 1 DAY
     Route: 048
  2. MIRTAZAPINE [Suspect]
     Dosage: 30 MILLIGRAM(S), 1IN 1 DAY
     Route: 048
  3. CETIRIZIN [Concomitant]
     Indication: SEASONAL ALLERGY
     Dosage: 10 MILLIGRAM(S), 1 IN 1 DAY
     Route: 048
  4. NASONEX [Concomitant]
     Indication: RHINITIS ALLERGIC
     Route: 045
  5. FOLIC ACID [Concomitant]
     Indication: PROPHYLAXIS OF NEURAL TUBE DEFECT
     Dosage: 0.8 MILLIGRAM(S), 1 IN 1 DAY
     Route: 048

REACTIONS (3)
  - Caesarean section [Unknown]
  - Amniocentesis [Unknown]
  - Maternal exposure during pregnancy [Unknown]
